FAERS Safety Report 8409500-0 (Version None)
Quarter: 2012Q2

REPORT INFORMATION
  Report Type: 
  Country: None (occurrence: None)
  Receive Date: 20120531
  Receipt Date: 20120531
  Transmission Date: 20120825
  Serious: Yes (Other)
  Sender: FDA-Public Use
  Company Number: None

PATIENT
  Age: 79 Year
  Sex: Female
  Weight: 45.3597 kg

DRUGS (2)
  1. BACTRIM DS [Suspect]
     Indication: CYSTITIS
     Dosage: 1-TAB 2X DAY
     Dates: start: 20120511, end: 20120514
  2. MACROBID [Suspect]
     Indication: CYSTITIS
     Dosage: 1-TAB 2X DAY
     Dates: start: 20120508, end: 20120509

REACTIONS (2)
  - HALLUCINATION [None]
  - HEADACHE [None]
